FAERS Safety Report 6045236-1 (Version None)
Quarter: 2009Q1

REPORT INFORMATION
  Report Type: 
  Country: None (occurrence: None)
  Receive Date: 20090121
  Receipt Date: 20090109
  Transmission Date: 20090719
  Serious: Yes (Hospitalization)
  Sender: FDA-Public Use
  Company Number: PHHY2008GB33041

PATIENT
  Sex: Female

DRUGS (6)
  1. CLOZARIL [Suspect]
     Indication: SCHIZOPHRENIA
     Dosage: UNK
     Dates: start: 20020410, end: 20081216
  2. CLOZARIL [Suspect]
     Dosage: 200 MG DAILY
     Dates: start: 20081218
  3. LITHIUM CARBONATE [Concomitant]
     Indication: MOOD SWINGS
     Dosage: 400 MG DAILY
     Route: 048
     Dates: start: 20020101
  4. AMITRIPTYLINE HCL [Concomitant]
     Indication: DEPRESSION
     Dosage: 50 MG DAILY
     Route: 048
  5. LEVOTHYROXINE SODIUM [Concomitant]
     Dosage: 100 MCG DAILY
     Route: 048
  6. LANSOPRAZOLE [Concomitant]
     Dosage: 30 MG DAILY
     Route: 048

REACTIONS (3)
  - BRONCHOPNEUMONIA [None]
  - LOWER RESPIRATORY TRACT INFECTION [None]
  - RENAL IMPAIRMENT [None]
